FAERS Safety Report 9336569 (Version 1)
Quarter: 2013Q2

REPORT INFORMATION
  Report Type: Spontaneous
  Country: US (occurrence: US)
  Receive Date: 20130607
  Receipt Date: 20130607
  Transmission Date: 20140414
  Serious: No
  Sender: FDA-Public Use
  Company Number: US-PFIZER INC-2013172522

PATIENT
  Age: 63 Year
  Sex: Male
  Weight: 83.9 kg

DRUGS (3)
  1. PRISTIQ [Suspect]
     Indication: DEPRESSION
     Dosage: 25 MG, 1X/DAY
     Route: 048
  2. BENAZEPRIL [Concomitant]
     Indication: HYPERTENSION
     Dosage: 40 MG, 1X/DAY
  3. BYSTOLIC [Concomitant]
     Indication: HYPERTENSION
     Dosage: 5 MG, 1X/DAY

REACTIONS (1)
  - Feeling abnormal [Unknown]
